FAERS Safety Report 8918202 (Version 2)
Quarter: 2013Q1

REPORT INFORMATION
  Report Type: Spontaneous
  Country: US (occurrence: US)
  Receive Date: 20121120
  Receipt Date: 20130128
  Transmission Date: 20140127
  Serious: No
  Sender: FDA-Public Use
  Company Number: US-009507513-1211USA005454

PATIENT
  Age: 83 Year
  Sex: Male

DRUGS (3)
  1. COSOPT [Suspect]
     Route: 047
  2. ZIOPTAN [Concomitant]
  3. LOTENSIN (CAPTOPRIL) [Concomitant]

REACTIONS (3)
  - Vision blurred [Unknown]
  - Vision blurred [Unknown]
  - Pain [Unknown]
